FAERS Safety Report 4660463-3 (Version None)
Quarter: 2005Q2

REPORT INFORMATION
  Report Type: 
  Country: None (occurrence: None)
  Receive Date: 20050512
  Receipt Date: 20050404
  Transmission Date: 20051028
  Serious: Yes (Other)
  Sender: FDA-Public Use
  Company Number: GB-GLAXOSMITHKLINE-B0376663A

PATIENT
  Age: 9 Year
  Sex: Female

DRUGS (1)
  1. AUGMENTIN [Suspect]
     Dosage: 5ML TWICE PER DAY
     Route: 048
     Dates: start: 20050319

REACTIONS (10)
  - BODY TEMPERATURE INCREASED [None]
  - CONVULSION [None]
  - DISCOMFORT [None]
  - DYSPNOEA [None]
  - HEADACHE [None]
  - MALAISE [None]
  - PAIN [None]
  - PAIN IN JAW [None]
  - PHARMACEUTICAL PRODUCT COMPLAINT [None]
  - SCREAMING [None]
